FAERS Safety Report 7791937-4 (Version None)
Quarter: 2011Q4

REPORT INFORMATION
  Report Type: 
  Country: None (occurrence: None)
  Receive Date: 20111003
  Receipt Date: 20110922
  Transmission Date: 20120403
  Serious: Yes (Other)
  Sender: FDA-Public Use
  Company Number: PHHY2011CA64485

PATIENT
  Sex: Male

DRUGS (6)
  1. HYDROCHLOROTHIAZIDE [Concomitant]
     Dosage: 25 MG, UNK
  2. VISKEN [Concomitant]
     Dosage: 10 MG, UNK
  3. EZETIMIBE [Concomitant]
  4. NORVASC [Concomitant]
     Dosage: 10 MG, BID
  5. LIPITOR [Concomitant]
  6. ALISKIREN [Suspect]
     Dosage: 300 MG, UNK
     Route: 048
     Dates: start: 20100916

REACTIONS (3)
  - PNEUMONIA [None]
  - COUGH [None]
  - DRY THROAT [None]
